FAERS Safety Report 7902577-8 (Version None)
Quarter: 2011Q4

REPORT INFORMATION
  Report Type: 
  Country: None (occurrence: None)
  Receive Date: 20111108
  Receipt Date: 20111024
  Transmission Date: 20120403
  Serious: Yes (Hospitalization)
  Sender: FDA-Public Use
  Company Number: GB-WATSON-2011-18501

PATIENT
  Age: 43 Year
  Sex: Male

DRUGS (3)
  1. DEPAKOTE [Suspect]
     Indication: INTENTIONAL OVERDOSE
     Dosage: UNK
  2. DEPAKOTE [Suspect]
     Indication: EPILEPSY
  3. IBUPROFEN [Suspect]
     Indication: INTENTIONAL OVERDOSE
     Dosage: UNK UNK, UNKNOWN
     Route: 065

REACTIONS (9)
  - INTENTIONAL OVERDOSE [None]
  - HYPERAMMONAEMIC ENCEPHALOPATHY [None]
  - RESPIRATORY ALKALOSIS [None]
  - BLOOD OSMOLARITY INCREASED [None]
  - METABOLIC ACIDOSIS [None]
  - HYPERAMMONAEMIA [None]
  - HYPOCALCAEMIA [None]
  - HYPERNATRAEMIA [None]
  - THROMBOCYTOPENIA [None]
